FAERS Safety Report 7733504-4 (Version None)
Quarter: 2011Q3

REPORT INFORMATION
  Report Type: 
  Country: None (occurrence: None)
  Receive Date: 20110907
  Receipt Date: 20110907
  Transmission Date: 20111222
  Serious: No
  Sender: FDA-Public Use
  Company Number: None

PATIENT
  Sex: Female
  Weight: 57.4 kg

DRUGS (1)
  1. SYNERA [Suspect]
     Indication: INJECTION SITE PAIN
     Dosage: 1 TO 2 PATCHES
     Route: 062
     Dates: start: 20110820, end: 20110822

REACTIONS (1)
  - DRUG INEFFECTIVE [None]
